FAERS Safety Report 5342326-3 (Version None)
Quarter: 2007Q2

REPORT INFORMATION
  Report Type: 
  Country: None (occurrence: None)
  Receive Date: 20070601
  Receipt Date: 20070525
  Transmission Date: 20071010
  Serious: Yes (Other)
  Sender: FDA-Public Use
  Company Number: US-ASTRAZENECA-2006UW09278

PATIENT
  Age: 65 Year
  Sex: Female
  Weight: 63.5 kg

DRUGS (5)
  1. ARIMIDEX [Suspect]
     Indication: BREAST CANCER FEMALE
  2. XALATAN [Concomitant]
     Indication: GLAUCOMA
  3. BETAGAN [Concomitant]
     Indication: GLAUCOMA
  4. ATENOLOL [Concomitant]
     Indication: BLOOD PRESSURE INCREASED
  5. DIOVAN [Concomitant]

REACTIONS (14)
  - ARTHRALGIA [None]
  - BLOOD PRESSURE INCREASED [None]
  - BLOOD URINE PRESENT [None]
  - BONE DISORDER [None]
  - BONE PAIN [None]
  - BRONCHITIS [None]
  - CHEST PAIN [None]
  - DYSURIA [None]
  - HOT FLUSH [None]
  - IRRITABILITY [None]
  - JOINT SWELLING [None]
  - MUSCULOSKELETAL DISCOMFORT [None]
  - PRODUCTIVE COUGH [None]
  - STOMACH DISCOMFORT [None]
